FAERS Safety Report 13772102 (Version 1)
Quarter: 2017Q3

REPORT INFORMATION
  Report Type: Spontaneous
  Country: US (occurrence: US)
  Receive Date: 20170720
  Receipt Date: 20170720
  Transmission Date: 20171127
  Serious: Yes (Disabling, Other)
  Sender: FDA-Public Use
  Company Number: US-ROCHE-1963535

PATIENT
  Age: 69 Year
  Sex: Male

DRUGS (1)
  1. OCREVUS [Suspect]
     Active Substance: OCRELIZUMAB
     Indication: MULTIPLE SCLEROSIS
     Dosage: YES
     Route: 065

REACTIONS (3)
  - Muscular weakness [Unknown]
  - Urinary tract infection [Unknown]
  - Gait disturbance [Unknown]
